FAERS Safety Report 17798520 (Version 6)
Quarter: 2020Q3

REPORT INFORMATION
  Report Type: Report from Study
  Country: None (occurrence: US)
  Receive Date: 20200518
  Receipt Date: 20200915
  Transmission Date: 20201102
  Serious: Yes (Other)
  Sender: FDA-Public Use
  Company Number: US-ABBVIE-20K-163-3360170-00

PATIENT
  Age: 43 Year
  Sex: Female

DRUGS (9)
  1. LISINOPRIL. [Concomitant]
     Active Substance: LISINOPRIL
     Indication: HYPERTENSION
  2. HUMIRA [Suspect]
     Active Substance: ADALIMUMAB
     Dosage: CITRATE FREE
     Route: 058
     Dates: start: 202007, end: 2020
  3. KEFLEX [Suspect]
     Active Substance: CEPHALEXIN
     Indication: INFECTION
     Route: 065
  4. IRON [Concomitant]
     Active Substance: IRON
     Indication: MINERAL SUPPLEMENTATION
  5. HUMIRA [Suspect]
     Active Substance: ADALIMUMAB
     Indication: HIDRADENITIS
     Dosage: CITRATE FREE
     Route: 058
     Dates: start: 202002
  6. COUMADINE [Concomitant]
     Active Substance: WARFARIN SODIUM
     Indication: PULMONARY EMBOLISM
  7. NORCO [Suspect]
     Active Substance: ACETAMINOPHEN\HYDROCODONE BITARTRATE
     Indication: PRODUCT USED FOR UNKNOWN INDICATION
     Route: 065
  8. DICLOFENAC [Concomitant]
     Active Substance: DICLOFENAC
     Indication: BACK PAIN
  9. PHENTERMINE. [Concomitant]
     Active Substance: PHENTERMINE
     Indication: PRODUCT USED FOR UNKNOWN INDICATION

REACTIONS (26)
  - Fatigue [Not Recovered/Not Resolved]
  - Pruritus [Recovered/Resolved]
  - Diarrhoea [Recovered/Resolved]
  - Toothache [Not Recovered/Not Resolved]
  - Rash erythematous [Not Recovered/Not Resolved]
  - Gingivitis [Recovered/Resolved]
  - Scab [Not Recovered/Not Resolved]
  - Diarrhoea [Not Recovered/Not Resolved]
  - Tooth fracture [Not Recovered/Not Resolved]
  - Nausea [Recovered/Resolved]
  - Diarrhoea [Recovered/Resolved]
  - Gait inability [Unknown]
  - Cellulitis [Recovering/Resolving]
  - Vomiting [Recovered/Resolved]
  - Vomiting [Recovered/Resolved]
  - Groin abscess [Not Recovered/Not Resolved]
  - Back pain [Not Recovered/Not Resolved]
  - Skin discharge [Recovering/Resolving]
  - Papule [Recovering/Resolving]
  - Abdominal pain [Not Recovered/Not Resolved]
  - Tooth extraction [Recovered/Resolved]
  - Dry skin [Not Recovered/Not Resolved]
  - Hidradenitis [Recovered/Resolved]
  - Nausea [Recovered/Resolved]
  - Abscess [Recovering/Resolving]
  - Pain of skin [Recovering/Resolving]

NARRATIVE: CASE EVENT DATE: 2020
